FAERS Safety Report 15126443 (Version 2)
Quarter: 2018Q3

REPORT INFORMATION
  Report Type: Spontaneous
  Country: JP (occurrence: JP)
  Receive Date: 20180710
  Receipt Date: 20180807
  Transmission Date: 20181010
  Serious: Yes (Hospitalization)
  Sender: FDA-Public Use
  Company Number: JP-MYLANLABS-2018M1050320

PATIENT
  Age: 14 Year
  Sex: Female
  Weight: 52 kg

DRUGS (4)
  1. ACETAMINOPHEN. [Suspect]
     Active Substance: ACETAMINOPHEN
     Indication: PRODUCT USED FOR UNKNOWN INDICATION
     Route: 065
  2. NIZATIDINE. [Suspect]
     Active Substance: NIZATIDINE
     Indication: GASTROENTERITIS
     Dosage: UNK
     Route: 048
  3. CLOSTRIDIUM BUTYRICUM [Suspect]
     Active Substance: CLOSTRIDIUM BUTYRICUM SPORES STRAIN M-55
     Indication: GASTROENTERITIS
     Dosage: UNK
     Route: 048
  4. DOMPERIDONE [Suspect]
     Active Substance: DOMPERIDONE
     Indication: GASTROENTERITIS
     Dosage: UNK
     Route: 048

REACTIONS (1)
  - Renal disorder [Recovering/Resolving]
